FAERS Safety Report 12959363 (Version 2)
Quarter: 2016Q4

REPORT INFORMATION
  Report Type: Report from Study
  Country: IE (occurrence: IE)
  Receive Date: 20161121
  Receipt Date: 20161226
  Transmission Date: 20170207
  Serious: Yes (Hospitalization, Other)
  Sender: FDA-Public Use
  Company Number: PHFR2016IE009039

PATIENT
  Age: 73 Year
  Sex: Male

DRUGS (3)
  1. ROMEP [Concomitant]
     Indication: GASTROINTESTINAL DISORDER
     Dosage: 40 MG, QD
     Route: 048
     Dates: start: 20160209, end: 20160520
  2. BETNOVATE [Concomitant]
     Active Substance: BETAMETHASONE
     Indication: PRODUCT USED FOR UNKNOWN INDICATION
     Dosage: UNK UNK, PRN
     Route: 061
  3. ULTIBRO BREEZHALER [Suspect]
     Active Substance: GLYCOPYRRONIUM\INDACATEROL
     Indication: CHRONIC OBSTRUCTIVE PULMONARY DISEASE
     Dosage: 1 DF, UNK
     Route: 055
     Dates: start: 20140318

REACTIONS (14)
  - Retching [Unknown]
  - Haematochezia [Unknown]
  - Productive cough [Unknown]
  - Oral candidiasis [Unknown]
  - Gastrooesophageal reflux disease [Unknown]
  - Cholelithiasis [Unknown]
  - Bronchitis [Unknown]
  - Cough [Unknown]
  - Skin papilloma [Unknown]
  - Urinary tract infection [Unknown]
  - Cholecystitis acute [Unknown]
  - Nausea [Unknown]
  - Abdominal pain upper [Unknown]
  - Laceration [Unknown]

NARRATIVE: CASE EVENT DATE: 20160108
